FAERS Safety Report 14636786 (Version 1)
Quarter: 2018Q1

REPORT INFORMATION
  Report Type: Spontaneous
  Country: US (occurrence: US)
  Receive Date: 20180314
  Receipt Date: 20180314
  Transmission Date: 20180509
  Serious: No
  Sender: FDA-Public Use
  Company Number: US-ASTRAZENECA-2018SE23430

PATIENT
  Age: 55 Year
  Sex: Female
  Weight: 132.9 kg

DRUGS (2)
  1. FARXIGA [Suspect]
     Active Substance: DAPAGLIFLOZIN PROPANEDIOL
     Indication: TYPE 2 DIABETES MELLITUS
     Dosage: EVERY DAY
     Route: 048
     Dates: end: 201711
  2. METFORMIN [Concomitant]
     Active Substance: METFORMIN HYDROCHLORIDE

REACTIONS (9)
  - Vaginal infection [Unknown]
  - Vaginal pH increased [Unknown]
  - Vulvovaginal pruritus [Unknown]
  - Renal disorder [Unknown]
  - Urogenital haemorrhage [Unknown]
  - Vaginal discharge [Unknown]
  - Adnexa uteri pain [Unknown]
  - Vulvovaginal discomfort [Unknown]
  - Vulvovaginal burning sensation [Unknown]
